FAERS Safety Report 20016156 (Version 1)
Quarter: 2021Q4

REPORT INFORMATION
  Report Type: Spontaneous
  Country: US (occurrence: None)
  Receive Date: 20211102
  Receipt Date: 20211102
  Transmission Date: 20220303
  Serious: Yes (Hospitalization)
  Sender: FDA-Public Use
  Company Number: None

PATIENT
  Age: 21 Year
  Sex: Female
  Weight: 57.61 kg

DRUGS (1)
  1. MIRENA [Suspect]
     Active Substance: LEVONORGESTREL
     Indication: Contraception
     Dates: start: 20180930, end: 20210408

REACTIONS (8)
  - Feeling abnormal [None]
  - Depression [None]
  - Pain [None]
  - Vaginal haemorrhage [None]
  - Abdominal pain [None]
  - Dyspareunia [None]
  - Loss of consciousness [None]
  - Abdominal distension [None]

NARRATIVE: CASE EVENT DATE: 20190130
